FAERS Safety Report 9611996 (Version 1)
Quarter: 2013Q4

REPORT INFORMATION
  Report Type: Spontaneous
  Country: FR (occurrence: FR)
  Receive Date: 20131010
  Receipt Date: 20131010
  Transmission Date: 20140711
  Serious: Yes (Hospitalization)
  Sender: FDA-Public Use
  Company Number: FR-SA-2013SA099931

PATIENT
  Age: 86 Year
  Sex: Male

DRUGS (8)
  1. LOVENOX [Suspect]
     Indication: PRODUCT USED FOR UNKNOWN INDICATION
     Dosage: DOSE:1 UNIT(S)
     Route: 065
     Dates: start: 20130904
  2. SELOKEN [Concomitant]
     Dosage: DOSE:1 UNIT(S)
     Route: 048
  3. PERINDOPRIL [Concomitant]
     Route: 048
  4. FUROSEMIDE [Concomitant]
     Route: 048
  5. EUPHYTOSE [Concomitant]
     Dosage: DOSE:1 UNIT(S)
     Route: 048
  6. AMYCOR [Concomitant]
     Dosage: DOSE: 1 APPLICATION DAILY
     Route: 003
  7. DAFALGAN [Concomitant]
     Dosage: DOSE:2 UNIT(S)
     Route: 048
  8. ACUPAN [Concomitant]
     Dosage: DOSE:4 UNIT(S)
     Route: 048

REACTIONS (3)
  - Renal failure [Recovered/Resolved]
  - Haematoma [Recovering/Resolving]
  - Normochromic normocytic anaemia [Not Recovered/Not Resolved]
